FAERS Safety Report 8021667-5 (Version None)
Quarter: 2012Q1

REPORT INFORMATION
  Report Type: 
  Country: None (occurrence: None)
  Receive Date: 20120104
  Receipt Date: 20120104
  Transmission Date: 20120608
  Serious: Yes (Disabling, Other)
  Sender: FDA-Public Use
  Company Number: None

PATIENT
  Age: 49 Year
  Sex: Male
  Weight: 117.93 kg

DRUGS (1)
  1. EMSAM [Suspect]
     Indication: DEPRESSION
     Dosage: 1 PATCH
     Route: 062
     Dates: start: 20101201, end: 20111201

REACTIONS (3)
  - OVERDOSE [None]
  - PRODUCT ADHESION ISSUE [None]
  - INCORRECT DOSE ADMINISTERED [None]
